FAERS Safety Report 11492545 (Version 1)
Quarter: 2015Q3

REPORT INFORMATION
  Report Type: Spontaneous
  Country: US (occurrence: None)
  Receive Date: 20150910
  Receipt Date: 20150910
  Transmission Date: 20151125
  Serious: Yes (Hospitalization, Disabling)
  Sender: FDA-Public Use
  Company Number: None

PATIENT
  Age: 65 Year
  Sex: Female
  Weight: 74.39 kg

DRUGS (10)
  1. SYNTHROID [Concomitant]
     Active Substance: LEVOTHYROXINE SODIUM
  2. ATANOLOL [Concomitant]
  3. CALCIUM [Concomitant]
     Active Substance: CALCIUM
  4. BABY ASPIRIN [Concomitant]
     Active Substance: ASPIRIN
  5. MULTIVITAMIN [Concomitant]
     Active Substance: VITAMINS
  6. RECLAST [Suspect]
     Active Substance: ZOLEDRONIC ACID
     Indication: BONE LOSS
     Dates: start: 20150416, end: 20150416
  7. RECLAST [Suspect]
     Active Substance: ZOLEDRONIC ACID
     Indication: PROPHYLAXIS
     Dates: start: 20150416, end: 20150416
  8. NEXIUM [Concomitant]
     Active Substance: ESOMEPRAZOLE MAGNESIUM
  9. VITAMIN D [Concomitant]
     Active Substance: CHOLECALCIFEROL
  10. OMEGA 3 [Concomitant]
     Active Substance: OMEGA-3 FATTY ACIDS

REACTIONS (12)
  - Headache [None]
  - Visual impairment [None]
  - Bone pain [None]
  - Pain [None]
  - Impaired work ability [None]
  - Pelvic pain [None]
  - Loose tooth [None]
  - Arthralgia [None]
  - Dizziness [None]
  - Tremor [None]
  - Decreased appetite [None]
  - Pain in jaw [None]

NARRATIVE: CASE EVENT DATE: 20150416
